FAERS Safety Report 6433635-5 (Version None)
Quarter: 2009Q4

REPORT INFORMATION
  Report Type: 
  Country: None (occurrence: None)
  Receive Date: 20091110
  Receipt Date: 20091028
  Transmission Date: 20100525
  Serious: Yes (Other)
  Sender: FDA-Public Use
  Company Number: PHHY2009GB38518

PATIENT
  Age: 30 Year
  Sex: Female

DRUGS (2)
  1. TEGRETOL RETARD [Suspect]
     Dosage: TWO AND HALF TABLETS (200 MG), BID
     Route: 048
     Dates: start: 20090801
  2. TEGRETOL RETARD [Suspect]
     Dosage: TWO AND HALF TABLETS (200 MG), BID
     Route: 048

REACTIONS (1)
  - CONVULSION [None]
